FAERS Safety Report 13776596 (Version 1)
Quarter: 2017Q3

REPORT INFORMATION
  Report Type: Report from Study
  Country: BR (occurrence: BR)
  Receive Date: 20170720
  Receipt Date: 20170720
  Transmission Date: 20171127
  Serious: Yes (Hospitalization)
  Sender: FDA-Public Use
  Company Number: BR-EMD SERONO-E2B_80075004

PATIENT
  Sex: Female

DRUGS (5)
  1. REBIF [Suspect]
     Active Substance: INTERFERON BETA-1A
     Route: 058
     Dates: start: 20170127, end: 20170704
  2. PARACETAMOL [Suspect]
     Active Substance: ACETAMINOPHEN
     Indication: HEADACHE
  3. DORFLEX [Suspect]
     Active Substance: CAFFEINE\DIPYRONE\ORPHENADRINE
     Indication: HEADACHE
  4. REBIF [Suspect]
     Active Substance: INTERFERON BETA-1A
     Indication: MULTIPLE SCLEROSIS
     Dosage: DOSE TITRATION
     Route: 058
     Dates: start: 201701
  5. IBUPROFEN. [Suspect]
     Active Substance: IBUPROFEN
     Indication: HEADACHE

REACTIONS (2)
  - Vomiting [Unknown]
  - Blood pressure increased [Not Recovered/Not Resolved]

NARRATIVE: CASE EVENT DATE: 2017
